FAERS Safety Report 9491317 (Version 1)
Quarter: 2013Q1

REPORT INFORMATION
  Report Type: Not Available
  Country: US (occurrence: US)
  Receive Date: 20120619
  Receipt Date: 20120619
  Transmission Date: 20140127
  Serious: Yes (Other)
  Sender: FDA-Public Use
  Company Number: US-LUNDBECK-DKLU1079411

PATIENT
  Age: 1 None
  Sex: Male

DRUGS (3)
  1. SABRIL (FOR ORAL SOLUTION) [Suspect]
     Indication: GRAND MAL CONVULSION
     Route: 048
     Dates: start: 20111213
  2. SABRIL (FOR ORAL SOLUTION) [Suspect]
     Indication: DROP ATTACKS
  3. SABRIL (FOR ORAL SOLUTION) [Suspect]
     Indication: INFANTILE SPASMS

REACTIONS (1)
  - Convulsion [Recovered/Resolved with Sequelae]
